FAERS Safety Report 21264471 (Version 1)
Quarter: 2022Q3

REPORT INFORMATION
  Report Type: Spontaneous
  Country: US (occurrence: US)
  Receive Date: 20220829
  Receipt Date: 20220829
  Transmission Date: 20221026
  Serious: Yes (Hospitalization, Other)
  Sender: FDA-Public Use
  Company Number: US-RECORDATI-2022000202

PATIENT
  Age: 9 Year
  Sex: Male
  Weight: 30.6 kg

DRUGS (9)
  1. DACTINOMYCIN [Suspect]
     Active Substance: DACTINOMYCIN
     Indication: Embryonal rhabdomyosarcoma
     Dosage: PER DOSING TABLE, ON DAY 1 OF CYCLES 1 AND 3
     Route: 042
     Dates: start: 20160629, end: 20160810
  2. DACTINOMYCIN [Suspect]
     Active Substance: DACTINOMYCIN
     Dosage: 1.5 MILLIGRAM (TOTAL DOSE), CYCLE 3
     Route: 042
     Dates: start: 20160810, end: 20160810
  3. TEMSIROLIMUS [Suspect]
     Active Substance: TEMSIROLIMUS
     Indication: Embryonal rhabdomyosarcoma
     Dosage: PER DOSING TABLE, ON DAYS 1, 8, AND 15
     Route: 042
     Dates: start: 20160629, end: 20160810
  4. TEMSIROLIMUS [Suspect]
     Active Substance: TEMSIROLIMUS
     Dosage: 16 MILLIGRAM (TOTAL DOSE), CYCLE 3
     Route: 042
     Dates: start: 20160810, end: 20160810
  5. VINCRISTINE SULFATE [Suspect]
     Active Substance: VINCRISTINE SULFATE
     Indication: Embryonal rhabdomyosarcoma
     Dosage: PER DOSING TABLE, ON DAYS 1, 8, AND 15
     Route: 042
     Dates: start: 20160629, end: 20160810
  6. VINCRISTINE SULFATE [Suspect]
     Active Substance: VINCRISTINE SULFATE
     Dosage: 3.2 MILLIGRAM (TOTAL DOSE), CYCLE 3
     Route: 042
     Dates: start: 20160810, end: 20160810
  7. IRINOTECAN HYDROCHLORIDE [Suspect]
     Active Substance: IRINOTECAN HYDROCHLORIDE
     Indication: Embryonal rhabdomyosarcoma
     Dosage: PER DOSING TABLE, ON DAYS 1-5 OF CYCLES 2 AND 4
     Route: 042
     Dates: end: 20160724
  8. CYCLOPHOSPHAMIDE [Suspect]
     Active Substance: CYCLOPHOSPHAMIDE
     Indication: Embryonal rhabdomyosarcoma
     Dosage: PER DOSING TABLE, ON DAY 1 OF CYCLES 1 AND 3
     Route: 042
     Dates: start: 20160629, end: 20160810
  9. CYCLOPHOSPHAMIDE [Suspect]
     Active Substance: CYCLOPHOSPHAMIDE
     Dosage: 1300 MILLIGRAM (TOTAL DOSE), CYCLE 3
     Route: 042
     Dates: start: 20160810, end: 20160810

REACTIONS (3)
  - Pneumonia [Recovering/Resolving]
  - Stomatitis [Recovering/Resolving]
  - Febrile neutropenia [Unknown]

NARRATIVE: CASE EVENT DATE: 20160818
